FAERS Safety Report 5461017-1 (Version None)
Quarter: 2007Q3

REPORT INFORMATION
  Report Type: 
  Country: None (occurrence: None)
  Receive Date: 20070822
  Receipt Date: 20070117
  Transmission Date: 20080115
  Serious: Yes (Other)
  Sender: FDA-Public Use
  Company Number: 2007005510

PATIENT
  Age: 70 Year
  Sex: Male
  Weight: 93 kg

DRUGS (3)
  1. NORVASC [Suspect]
     Indication: HYPERTENSION
     Dosage: 5 MG (5 MG, QD: EVERYDAY)
     Dates: start: 20061210
  2. HYDROCHLOROTHIAZIDE [Concomitant]
  3. BABYPYRIN (ACETYLSALICYLIC ACID) [Concomitant]

REACTIONS (3)
  - LIP SWELLING [None]
  - PARAESTHESIA ORAL [None]
  - SWELLING FACE [None]
